FAERS Safety Report 4979706-1 (Version None)
Quarter: 2006Q2

REPORT INFORMATION
  Report Type: 
  Country: None (occurrence: None)
  Receive Date: 20060418
  Receipt Date: 20060403
  Transmission Date: 20061013
  Serious: No
  Sender: FDA-Public Use
  Company Number: 2006-140773-NL

PATIENT
  Age: 58 Year
  Sex: Male

DRUGS (2)
  1. DEXAMETHASONE SODIUM PHOSPHATE [Suspect]
     Indication: DIABETES MELLITUS
     Dosage: 2.5 MG
     Dates: start: 20010801, end: 20011001
  2. DEXAMETHASONE SODIUM PHOSPHATE [Suspect]
     Indication: TENDONITIS
     Dosage: 2.5 MG
     Dates: start: 20010801, end: 20011001

REACTIONS (6)
  - DIFFICULTY IN WALKING [None]
  - DYSSTASIA [None]
  - GAIT DISTURBANCE [None]
  - MUSCULAR WEAKNESS [None]
  - TENDON DISORDER [None]
  - TENDON RUPTURE [None]
